FAERS Safety Report 7539884-7 (Version None)
Quarter: 2011Q2

REPORT INFORMATION
  Report Type: 
  Country: None (occurrence: None)
  Receive Date: 20110610
  Receipt Date: 20110606
  Transmission Date: 20111010
  Serious: Yes (Death, Life-Threatening, Hospitalization, Other)
  Sender: FDA-Public Use
  Company Number: FR-PFIZER INC-2011121798

PATIENT
  Age: 80 Year
  Sex: Male

DRUGS (8)
  1. ATORVASTATIN [Suspect]
     Dosage: UNK
     Route: 048
     Dates: end: 20110311
  2. ACETAMINOPHEN [Suspect]
     Dosage: UNK
     Route: 048
     Dates: start: 20110310, end: 20110312
  3. PREVISCAN [Concomitant]
     Dosage: UNK
     Route: 048
  4. DRONEDARONE HCL [Suspect]
     Indication: CARDIAC FAILURE
     Dosage: 400 MG, 2X/DAY
     Route: 048
     Dates: start: 20101001, end: 20110311
  5. ASPIRIN [Concomitant]
     Dosage: UNK
     Route: 048
     Dates: start: 20100801
  6. PLAVIX [Concomitant]
     Dosage: UNK
     Route: 048
     Dates: start: 20100801
  7. PERINDOPRIL ERBUMINE [Suspect]
     Dosage: 5 MG, 1X/DAY
     Route: 048
     Dates: start: 20100801, end: 20110311
  8. LASIX [Concomitant]
     Dosage: 40 MG, 2X/DAY
     Route: 048
     Dates: start: 20100701

REACTIONS (12)
  - METABOLIC ACIDOSIS [None]
  - ALTERED STATE OF CONSCIOUSNESS [None]
  - CARDIAC FAILURE [None]
  - RENAL FAILURE [None]
  - MYOCARDIAL INFARCTION [None]
  - ACIDOSIS [None]
  - HEPATIC FAILURE [None]
  - ACUTE MYOCARDIAL INFARCTION [None]
  - HEPATITIS FULMINANT [None]
  - MULTI-ORGAN FAILURE [None]
  - CARDIO-RESPIRATORY ARREST [None]
  - HYPERKALAEMIA [None]
